FAERS Safety Report 16040161 (Version 1)
Quarter: 2019Q1

REPORT INFORMATION
  Report Type: Spontaneous
  Country: BR (occurrence: BR)
  Receive Date: 20190306
  Receipt Date: 20190306
  Transmission Date: 20190418
  Serious: Yes (Disabling, Other)
  Sender: FDA-Public Use
  Company Number: BR-PFIZER INC-2019093607

PATIENT
  Age: 37 Year
  Sex: Female

DRUGS (3)
  1. LYRICA [Suspect]
     Active Substance: PREGABALIN
     Indication: BRUXISM
     Dosage: 75 MG, 1X/DAY
  2. LYRICA [Suspect]
     Active Substance: PREGABALIN
     Indication: PAIN
  3. LYRICA [Suspect]
     Active Substance: PREGABALIN
     Indication: HEADACHE
     Dosage: 75 MG 2X/DAY (ONE TABLET IN THE MORNING AND ONE TABLET AT NIGHT)
     Dates: start: 2018

REACTIONS (10)
  - Limb discomfort [Unknown]
  - Somnolence [Unknown]
  - Inflammation [Unknown]
  - Pain in extremity [Unknown]
  - Hypoaesthesia [Unknown]
  - Ligament sprain [Unknown]
  - Hemianaesthesia [Unknown]
  - Arthritis [Unknown]
  - Synovitis [Unknown]
  - Drug ineffective [Unknown]

NARRATIVE: CASE EVENT DATE: 20190224
